FAERS Safety Report 24095145 (Version 1)
Quarter: 2024Q3

REPORT INFORMATION
  Report Type: Report from Study
  Country: US (occurrence: None)
  Receive Date: 20240716
  Receipt Date: 20240716
  Transmission Date: 20241017
  Serious: Yes (Other)
  Sender: ASTRAZENECA
  Company Number: 2019SF01086

PATIENT
  Sex: Female

DRUGS (6)
  1. LYNPARZA [Suspect]
     Active Substance: OLAPARIB
     Indication: Ovarian cancer
     Route: 048
     Dates: start: 20190415
  2. LYNPARZA [Suspect]
     Active Substance: OLAPARIB
     Indication: Ovarian cancer
     Route: 048
  3. METOPROLOL SUCCINATE [Suspect]
     Active Substance: METOPROLOL SUCCINATE
     Route: 048
  4. FLAXSEED [Concomitant]
     Active Substance: FLAX SEED
  5. LOSARTAN POTASSIUM [Concomitant]
     Active Substance: LOSARTAN POTASSIUM
  6. TYLENOL [Concomitant]
     Active Substance: ACETAMINOPHEN

REACTIONS (1)
  - Full blood count decreased [Unknown]
